FAERS Safety Report 8590103 (Version 6)
Quarter: 2013Q4

REPORT INFORMATION
  Report Type: Spontaneous
  Country: US (occurrence: US)
  Receive Date: 20120516
  Receipt Date: 20131231
  Transmission Date: 20140711
  Serious: Yes (Hospitalization, Other)
  Sender: FDA-Public Use
  Company Number: US-009507513-2012SP025394

PATIENT
  Sex: Female
  Weight: 112 kg

DRUGS (1)
  1. NUVARING [Suspect]
     Indication: CONTRACEPTION
     Dosage: UNK
     Route: 067
     Dates: start: 200707, end: 201108

REACTIONS (12)
  - Vascular pseudoaneurysm [Unknown]
  - Post procedural complication [Unknown]
  - Peripheral embolism [Recovered/Resolved]
  - Constipation [Unknown]
  - Pain in extremity [Unknown]
  - Ischaemia [Recovered/Resolved]
  - Peripheral embolism [Recovered/Resolved]
  - Carpal tunnel syndrome [Unknown]
  - Hypoaesthesia [Recovered/Resolved]
  - Monoparesis [Recovered/Resolved]
  - Pain [Unknown]
  - Cerebrovascular accident [Unknown]
